FAERS Safety Report 11860561 (Version 3)
Quarter: 2016Q1

REPORT INFORMATION
  Report Type: Spontaneous
  Country: US (occurrence: US)
  Receive Date: 20151222
  Receipt Date: 20160203
  Transmission Date: 20160526
  Serious: Yes (Hospitalization)
  Sender: FDA-Public Use
  Company Number: US-UNITED THERAPEUTICS-UNT-2015-015652

PATIENT
  Age: 52 Year
  Sex: Female
  Weight: 73.16 kg

DRUGS (3)
  1. REMODULIN [Suspect]
     Active Substance: TREPROSTINIL
     Indication: PULMONARY HYPERTENSION
     Dosage: 0.0275 ?G/KG/MIN, CONTINUING
     Route: 041
     Dates: start: 20150626
  2. REMODULIN [Suspect]
     Active Substance: TREPROSTINIL
     Dosage: 0.04375 ?G/KG/MIN, CONTINUING
     Route: 041
  3. REVATIO [Concomitant]
     Active Substance: SILDENAFIL CITRATE
     Indication: PRODUCT USED FOR UNKNOWN INDICATION

REACTIONS (8)
  - Vomiting [Unknown]
  - Asthenia [Unknown]
  - Mobility decreased [Unknown]
  - Hypometabolism [Unknown]
  - Nausea [Unknown]
  - Loss of consciousness [Unknown]
  - Dehydration [Unknown]
  - Decreased appetite [Unknown]

NARRATIVE: CASE EVENT DATE: 20151207
